FAERS Safety Report 10061527 (Version 1)
Quarter: 2014Q2

REPORT INFORMATION
  Report Type: Spontaneous
  Country: US (occurrence: None)
  Receive Date: 20140404
  Receipt Date: 20140404
  Transmission Date: 20141212
  Serious: No
  Sender: FDA-Public Use
  Company Number: None

PATIENT
  Age: 65 Year
  Sex: Female
  Weight: 52.62 kg

DRUGS (5)
  1. ASPIRIN ENTERIC COATED [Suspect]
     Indication: ANTICOAGULANT THERAPY
     Dosage: 23 TABLETS 1 TABLET A DAY BY MOUTH
     Route: 048
     Dates: start: 201401, end: 20130323
  2. NATRILIX SR [Concomitant]
  3. INDAPAMIDE [Concomitant]
  4. SIMVASTATIN [Concomitant]
  5. POTASSIUM CL MEQ TABLET [Concomitant]

REACTIONS (1)
  - Product taste abnormal [None]
